FAERS Safety Report 12211380 (Version 1)
Quarter: 2016Q1

REPORT INFORMATION
  Report Type: Spontaneous
  Country: CN (occurrence: CN)
  Receive Date: 20160325
  Receipt Date: 20160325
  Transmission Date: 20160526
  Serious: Yes (Other)
  Sender: FDA-Public Use
  Company Number: CN-BAYER-2016-053269

PATIENT
  Age: 67 Year
  Sex: Female

DRUGS (1)
  1. BAYASPIRIN [Suspect]
     Active Substance: ASPIRIN
     Dosage: UNK
     Dates: start: 201510

REACTIONS (2)
  - Haemoglobin decreased [None]
  - Abdominal discomfort [None]

NARRATIVE: CASE EVENT DATE: 201601
